FAERS Safety Report 4748878-6 (Version None)
Quarter: 2005Q3

REPORT INFORMATION
  Report Type: 
  Country: None (occurrence: None)
  Receive Date: 20050812
  Receipt Date: 20050603
  Transmission Date: 20060218
  Serious: Yes (Other)
  Sender: FDA-Public Use
  Company Number: 337587

PATIENT
  Age: 39 Year
  Sex: Female
  Weight: 46.7 kg

DRUGS (3)
  1. PEGASYS [Suspect]
     Indication: HEPATITIS C
     Dosage: 180 MCG 1 PER WEEK SUBCUTANEOUS
     Route: 058
     Dates: start: 20021102, end: 20030505
  2. COPEGUS [Suspect]
     Indication: HEPATITIS C
     Dosage: ORAL
     Route: 048
     Dates: start: 20030215, end: 20030505
  3. REBETOL [Concomitant]

REACTIONS (8)
  - ALOPECIA [None]
  - BLOOD THYROID STIMULATING HORMONE INCREASED [None]
  - CHEST PAIN [None]
  - HYPOTHYROIDISM [None]
  - IRRITABILITY [None]
  - LETHARGY [None]
  - SWELLING FACE [None]
  - WEIGHT DECREASED [None]
